FAERS Safety Report 19566997 (Version 1)
Quarter: 2021Q3

REPORT INFORMATION
  Report Type: Report from Study
  Country: AE (occurrence: AE)
  Receive Date: 20210715
  Receipt Date: 20210715
  Transmission Date: 20211014
  Serious: Yes (Other)
  Sender: FDA-Public Use
  Company Number: AE-ASTRAZENECA-2021A622197

PATIENT
  Sex: Male

DRUGS (1)
  1. FASENRA [Suspect]
     Active Substance: BENRALIZUMAB
     Indication: ASTHMA
     Dosage: 0MG ONCE EVERY 4 WEEKS FOR 3 MONTHS THEN ONCE30.0MG UNKNOWN
     Route: 058
     Dates: start: 20210302

REACTIONS (1)
  - COVID-19 [Recovering/Resolving]
